FAERS Safety Report 7270628-2 (Version None)
Quarter: 2011Q1

REPORT INFORMATION
  Report Type: 
  Country: None (occurrence: None)
  Receive Date: 20110202
  Receipt Date: 20110125
  Transmission Date: 20110831
  Serious: Yes (Death, Hospitalization)
  Sender: FDA-Public Use
  Company Number: A0892257A

PATIENT
  Age: 72 Year
  Sex: Female

DRUGS (1)
  1. HYCAMTIN [Suspect]

REACTIONS (1)
  - NEUROENDOCRINE CARCINOMA OF THE SKIN [None]
